FAERS Safety Report 7016205-X (Version None)
Quarter: 2010Q3

REPORT INFORMATION
  Report Type: 
  Country: None (occurrence: None)
  Receive Date: 20100927
  Receipt Date: 20091007
  Transmission Date: 20110219
  Serious: No
  Sender: FDA-Public Use
  Company Number: US-ASTRAZENECA-2009SE07762

PATIENT
  Sex: Female
  Weight: 84.4 kg

DRUGS (7)
  1. ARIMIDEX [Suspect]
     Route: 048
  2. VITAMIN B10 [Concomitant]
  3. CALCIUM [Concomitant]
  4. POTASSIUM [Concomitant]
  5. LEVOTHYROXINE SODIUM [Concomitant]
  6. HYDROCHLOROTHIAZIDE [Concomitant]
  7. LACTALOW SOLUTION [Concomitant]

REACTIONS (1)
  - AGEUSIA [None]
